FAERS Safety Report 8272355-1 (Version None)
Quarter: 2012Q1

REPORT INFORMATION
  Report Type: 
  Country: None (occurrence: None)
  Receive Date: 20120321
  Receipt Date: 20110810
  Transmission Date: 20120608
  Serious: Yes (Other)
  Sender: FDA-Public Use
  Company Number: 2011SP037753

PATIENT
  Age: 57 Year
  Sex: Male

DRUGS (2)
  1. REBETOL [Suspect]
     Indication: HEPATITIS C
     Dates: start: 20110701
  2. PEG-INTRON [Suspect]
     Indication: HEPATITIS C
     Dosage: ;QW;
     Dates: start: 20110701

REACTIONS (1)
  - PLATELET COUNT DECREASED [None]
